FAERS Safety Report 4715537-5 (Version None)
Quarter: 2005Q3

REPORT INFORMATION
  Report Type: 
  Country: None (occurrence: None)
  Receive Date: 20050715
  Receipt Date: 20050715
  Transmission Date: 20060218
  Serious: No
  Sender: FDA-Public Use
  Company Number: None

PATIENT
  Sex: Male

DRUGS (2)
  1. VIAGRA [Suspect]
  2. . [Concomitant]

REACTIONS (3)
  - BLINDNESS UNILATERAL [None]
  - EYE HAEMORRHAGE [None]
  - VASCULAR RUPTURE [None]
